FAERS Safety Report 18768414 (Version 2)
Quarter: 2021Q2

REPORT INFORMATION
  Report Type: Report from Study
  Country: JP (occurrence: JP)
  Receive Date: 20210121
  Receipt Date: 20210524
  Transmission Date: 20210717
  Serious: Yes (Hospitalization, Other)
  Sender: FDA-Public Use
  Company Number: JP-KYOWAKIRIN-2021AKK000761

PATIENT

DRUGS (43)
  1. OMEPRAZOLE. [Concomitant]
     Active Substance: OMEPRAZOLE
     Indication: PROPHYLAXIS
     Dosage: UNK
     Route: 048
     Dates: start: 20170429, end: 20170429
  2. UBIDECARENONE. [Concomitant]
     Active Substance: UBIDECARENONE
     Indication: PROPHYLAXIS
     Dosage: UNK
     Route: 048
     Dates: start: 20170414, end: 20170625
  3. PREDONINE [Concomitant]
     Active Substance: PREDNISOLONE
     Indication: PROPHYLAXIS
     Dosage: UNK
     Route: 048
     Dates: start: 20170418, end: 20170523
  4. MOGAMULIZUMAB [Suspect]
     Active Substance: MOGAMULIZUMAB
     Dosage: 1 MG/KG
     Route: 041
     Dates: start: 20170417, end: 20170417
  5. DEXCHLORPHENIRAMINE MALEATE. [Concomitant]
     Active Substance: DEXCHLORPHENIRAMINE MALEATE
     Dosage: UNK
     Route: 048
     Dates: start: 20170519, end: 20170519
  6. ITRACONAZOLE. [Concomitant]
     Active Substance: ITRACONAZOLE
     Indication: INFECTION PROPHYLAXIS
     Dosage: UNK
     Route: 048
     Dates: start: 20170414, end: 20170625
  7. AMLODIPINE [AMLODIPINE BESILATE] [Concomitant]
     Active Substance: AMLODIPINE BESYLATE
     Dosage: UNK
     Route: 048
     Dates: start: 20170420, end: 20170426
  8. LIXIANA [Concomitant]
     Active Substance: EDOXABAN TOSYLATE
     Dosage: 15 MG
     Route: 048
     Dates: start: 20170615, end: 20170629
  9. SPIRONOLACTONE. [Concomitant]
     Active Substance: SPIRONOLACTONE
     Dosage: UNK
     Route: 048
     Dates: start: 20170609, end: 20170625
  10. DEXALTIN [Concomitant]
     Active Substance: DEXAMETHASONE
     Indication: STOMATITIS
     Dosage: UNK
     Route: 061
     Dates: start: 20170426, end: 20170501
  11. RABEPRAZOLE NA [Concomitant]
     Active Substance: RABEPRAZOLE SODIUM
     Indication: PROPHYLAXIS
     Dosage: UNK
     Route: 048
     Dates: start: 20170505, end: 20170625
  12. FEBURIC [Concomitant]
     Active Substance: FEBUXOSTAT
     Dosage: UNK
     Route: 048
     Dates: end: 20170625
  13. SUNRYTHM [Concomitant]
     Active Substance: PILSICAINIDE HYDROCHLORIDE
     Indication: PROPHYLAXIS
     Dosage: UNK
     Route: 048
     Dates: start: 20170519, end: 20170614
  14. DIART [Concomitant]
     Active Substance: AZOSEMIDE
     Indication: PROPHYLAXIS
     Dosage: UNK
     Route: 048
     Dates: start: 20170519, end: 20170608
  15. ISOTONIC SODIUM CHLORIDE SOLUTION [Concomitant]
     Active Substance: SODIUM CHLORIDE
     Indication: CYTOMEGALOVIRUS TEST POSITIVE
     Dosage: UNK
     Route: 065
     Dates: start: 20170606, end: 20170608
  16. LOXOPROFEN [LOXOPROFEN SODIUM] [Concomitant]
     Active Substance: LOXOPROFEN SODIUM
     Indication: INFUSION RELATED REACTION
     Dosage: UNK
     Route: 048
     Dates: start: 20170603, end: 20170606
  17. MAGNESIUM OXIDE. [Concomitant]
     Active Substance: MAGNESIUM OXIDE
     Indication: PROPHYLAXIS
     Dosage: UNK
     Route: 048
     Dates: end: 20170525
  18. MIYA?BM [Concomitant]
     Active Substance: CLOSTRIDIUM BUTYRICUM SPORES STRAIN M-55
     Indication: PROPHYLAXIS
     Dosage: UNK
     Route: 048
     Dates: start: 20170414, end: 20170625
  19. VALIXA [Concomitant]
     Active Substance: VALGANCICLOVIR
     Indication: CYTOMEGALOVIRUS TEST POSITIVE
     Dosage: UNK
     Route: 048
     Dates: start: 20170607, end: 20170630
  20. XYLOCAINE [Concomitant]
     Active Substance: LIDOCAINE HYDROCHLORIDE
     Indication: STOMATITIS
     Dosage: UNK
     Route: 049
     Dates: start: 20170501, end: 20170510
  21. MOGAMULIZUMAB [Suspect]
     Active Substance: MOGAMULIZUMAB
     Indication: ADULT T-CELL LYMPHOMA/LEUKAEMIA
     Dosage: 1 MG/KG
     Route: 041
     Dates: start: 20170519, end: 20170519
  22. DEXCHLORPHENIRAMINE MALEATE. [Concomitant]
     Active Substance: DEXCHLORPHENIRAMINE MALEATE
     Indication: PROPHYLAXIS
     Dosage: UNK, 1X/MONTH
     Route: 048
     Dates: start: 20170417, end: 20170417
  23. DEXART [Concomitant]
     Active Substance: DEXAMETHASONE SODIUM PHOSPHATE
     Indication: PROPHYLAXIS
     Dosage: 6.6 MG
     Route: 065
     Dates: start: 20170417, end: 20170417
  24. DEXART [Concomitant]
     Active Substance: DEXAMETHASONE SODIUM PHOSPHATE
     Dosage: 6.6 MG
     Route: 065
     Dates: start: 20170519, end: 20170519
  25. VITAMEDIN [CYANOCOBALAMIN;PYRIDOXINE HYDROCHLORIDE;THIAMINE HYDROCHLOR [Concomitant]
     Indication: PROPHYLAXIS
     Dosage: UNK
     Route: 048
     Dates: start: 20170512, end: 20170625
  26. DAIPHEN [Concomitant]
     Active Substance: SULFAMETHOXAZOLE\TRIMETHOPRIM
     Indication: INFECTION PROPHYLAXIS
     Dosage: UNK
     Route: 048
     Dates: start: 20170414, end: 20170625
  27. AMLODIPINE [AMLODIPINE BESILATE] [Concomitant]
     Active Substance: AMLODIPINE BESYLATE
     Dosage: UNK
     Route: 048
     Dates: start: 20170427, end: 20170528
  28. ETIZOLAM [Concomitant]
     Active Substance: ETIZOLAM
     Indication: PROPHYLAXIS
     Dosage: UNK
     Route: 048
     Dates: start: 20170429, end: 20170625
  29. AZUNOL [GUAIAZULENE] [Concomitant]
     Active Substance: GUAIAZULENE
     Indication: SKIN EROSION
     Dosage: UNK
     Route: 061
     Dates: start: 20170531, end: 20170601
  30. POLYCARBOPHIL CA [Concomitant]
     Active Substance: CALCIUM POLYCARBOPHIL
     Indication: PROPHYLAXIS
     Dosage: UNK
     Route: 048
     Dates: start: 20170602, end: 20170625
  31. FILGRASTIM BS [FILGRASTIM BIOSIMILAR 1] [Concomitant]
     Active Substance: FILGRASTIM
     Indication: PROPHYLAXIS
     Dosage: UNK
     Route: 065
     Dates: start: 20170529, end: 20170604
  32. OMEGACIN [Concomitant]
     Active Substance: BIAPENEM
     Indication: CYTOMEGALOVIRUS TEST POSITIVE
     Dosage: UNK
     Route: 065
     Dates: start: 20170606, end: 20170608
  33. TOFISOPAM [Concomitant]
     Active Substance: TOFISOPAM
     Dosage: UNK
     Route: 048
     Dates: start: 20170505, end: 20170625
  34. RILMAZAFONE HYDROCHLORIDE [Concomitant]
     Active Substance: RILMAZAFONE HYDROCHLORIDE
     Indication: PROPHYLAXIS
     Dosage: UNK
     Route: 048
     Dates: start: 20170519, end: 20170627
  35. ISCOTIN [Concomitant]
     Active Substance: ISONIAZID
     Indication: INFECTION PROPHYLAXIS
     Dosage: UNK
     Route: 048
     Dates: start: 20170414, end: 20170625
  36. CRESTOR OD [Concomitant]
     Active Substance: ROSUVASTATIN CALCIUM
     Dosage: UNK
     Route: 048
     Dates: start: 20170512, end: 20170625
  37. XYZAL [Concomitant]
     Active Substance: LEVOCETIRIZINE DIHYDROCHLORIDE
     Indication: PROPHYLAXIS
     Dosage: UNK
     Route: 048
     Dates: start: 20170418, end: 20170625
  38. ASPARA POTASSIUM [Concomitant]
     Active Substance: POTASSIUM ASPARTATE
     Indication: PROPHYLAXIS
     Dosage: UNK
     Route: 048
     Dates: start: 20170601, end: 20170625
  39. LOPERAMIDE [LOPERAMIDE HYDROCHLORIDE] [Concomitant]
     Active Substance: LOPERAMIDE HYDROCHLORIDE
     Indication: PROPHYLAXIS
     Dosage: UNK
     Route: 048
     Dates: start: 20170601, end: 20170607
  40. AZUNOL GARGLE LIQUID [Concomitant]
     Active Substance: SODIUM GUALENATE MONOHYDRATE
     Indication: STOMATITIS
     Dosage: UNK
     Route: 049
     Dates: start: 20170501, end: 20170510
  41. SODIUM CHLORIDE. [Concomitant]
     Active Substance: SODIUM CHLORIDE
     Indication: HYPONATRAEMIA
     Dosage: UNK
     Route: 065
     Dates: start: 20170616, end: 20170628
  42. ELNEOPA NO.2 [Concomitant]
     Active Substance: AMINO ACIDS\DEXTROSE\ELECTROLYTES NOS\MINERALS\VITAMINS
     Dosage: UNK
     Route: 065
     Dates: start: 20170615, end: 20170628
  43. GASTER [Concomitant]
     Active Substance: FAMOTIDINE
     Indication: PROPHYLAXIS
     Dosage: UNK
     Route: 065
     Dates: start: 20170616, end: 20170628

REACTIONS (7)
  - Hyponatraemia [Not Recovered/Not Resolved]
  - Erythema [Not Recovered/Not Resolved]
  - Cytomegalovirus test positive [Not Recovered/Not Resolved]
  - Myelosuppression [Recovered/Resolved]
  - Infusion related reaction [Not Recovered/Not Resolved]
  - Stomatitis [Recovered/Resolved]
  - Skin erosion [Not Recovered/Not Resolved]

NARRATIVE: CASE EVENT DATE: 20170426
